FAERS Safety Report 5774623-1 (Version None)
Quarter: 2008Q2

REPORT INFORMATION
  Report Type: 
  Country: None (occurrence: None)
  Receive Date: 20080616
  Receipt Date: 20080317
  Transmission Date: 20081010
  Serious: Yes (Hospitalization, Other)
  Sender: FDA-Public Use
  Company Number: US-MERCK-0801USA02424

PATIENT
  Age: 55 Year
  Sex: Male

DRUGS (1)
  1. ZOLINZA [Suspect]
     Indication: MYCOSIS FUNGOIDES STAGE II
     Route: 048
     Dates: start: 20070816, end: 20071101

REACTIONS (22)
  - AGEUSIA [None]
  - ANAEMIA [None]
  - ANOREXIA [None]
  - BLOOD ALKALINE PHOSPHATASE INCREASED [None]
  - CHILLS [None]
  - COUGH [None]
  - CYST [None]
  - DEHYDRATION [None]
  - DIABETIC KETOACIDOSIS [None]
  - FATIGUE [None]
  - FEELING ABNORMAL [None]
  - HEADACHE [None]
  - HYPONATRAEMIA [None]
  - INSOMNIA [None]
  - LETHARGY [None]
  - MALNUTRITION [None]
  - NAUSEA [None]
  - PYREXIA [None]
  - THROMBOCYTHAEMIA [None]
  - VOMITING [None]
  - WEIGHT DECREASED [None]
  - WHITE BLOOD CELL COUNT INCREASED [None]
